FAERS Safety Report 4475225-X (Version None)
Quarter: 2004Q3

REPORT INFORMATION
  Report Type: 
  Country: None (occurrence: None)
  Receive Date: 20040923
  Receipt Date: 20040715
  Transmission Date: 20050211
  Serious: No
  Sender: FDA-Public Use
  Company Number: USA040671046

PATIENT
  Age: 51 Year
  Sex: Female
  Weight: 45 kg

DRUGS (6)
  1. FORTEO [Suspect]
     Indication: OSTEOPOROSIS
     Dosage: 20 UG DAY
     Dates: start: 20040615
  2. ACYCLOVIR (ACICLOVIR EG) [Concomitant]
  3. CALCIUM [Concomitant]
  4. CLARINEX [Concomitant]
  5. SYNTHROID [Concomitant]
  6. PRAVACHOL [Concomitant]

REACTIONS (3)
  - ARTHRALGIA [None]
  - BREAST TENDERNESS [None]
  - FATIGUE [None]
